FAERS Safety Report 17641841 (Version 2)
Quarter: 2020Q2

REPORT INFORMATION
  Report Type: Spontaneous
  Country: MX (occurrence: MX)
  Receive Date: 20200408
  Receipt Date: 20200420
  Transmission Date: 20200713
  Serious: Yes (Other)
  Sender: FDA-Public Use
  Company Number: MX-ROCHE-2575077

PATIENT

DRUGS (3)
  1. GAZYVA [Suspect]
     Active Substance: OBINUTUZUMAB
     Indication: CHRONIC LYMPHOCYTIC LEUKAEMIA
     Route: 042
  2. GAZYVA [Suspect]
     Active Substance: OBINUTUZUMAB
     Dosage: SECOND CYCLE
     Route: 042
  3. VENETOCLAX. [Concomitant]
     Active Substance: VENETOCLAX

REACTIONS (1)
  - Seizure [Unknown]

NARRATIVE: CASE EVENT DATE: 20200324
